FAERS Safety Report 19862553 (Version 4)
Quarter: 2023Q4

REPORT INFORMATION
  Report Type: Spontaneous
  Country: US (occurrence: US)
  Receive Date: 20210921
  Receipt Date: 20231129
  Transmission Date: 20240110
  Serious: No
  Sender: FDA-Public Use
  Company Number: US-PFIZER INC-2021656524

PATIENT
  Age: 79 Year
  Sex: Male

DRUGS (1)
  1. XELJANZ XR [Suspect]
     Active Substance: TOFACITINIB CITRATE
     Dosage: 11 MG

REACTIONS (5)
  - Hypoacusis [Unknown]
  - Tinnitus [Unknown]
  - Diarrhoea [Unknown]
  - Nausea [Unknown]
  - Hot flush [Unknown]
